FAERS Safety Report 19586954 (Version 1)
Quarter: 2021Q3

REPORT INFORMATION
  Report Type: Spontaneous
  Country: US (occurrence: US)
  Receive Date: 20210721
  Receipt Date: 20210721
  Transmission Date: 20211014
  Serious: No
  Sender: FDA-Public Use
  Company Number: US-STRIDES ARCOLAB LIMITED-2020SP010408

PATIENT
  Age: 81 Year
  Sex: Male

DRUGS (2)
  1. CYCLOSPORINE. [Suspect]
     Active Substance: CYCLOSPORINE
     Indication: CUTANEOUS T-CELL LYMPHOMA
     Dosage: UNK
     Route: 065
  2. MYCOPHENOLATE MOFETIL. [Suspect]
     Active Substance: MYCOPHENOLATE MOFETIL
     Indication: CUTANEOUS T-CELL LYMPHOMA
     Dosage: UNK
     Route: 065

REACTIONS (2)
  - Blood creatinine increased [Unknown]
  - Off label use [Unknown]
